FAERS Safety Report 7889776 (Version 3)
Quarter: 2013Q1

REPORT INFORMATION
  Report Type: Spontaneous
  Country: US (occurrence: US)
  Receive Date: 20110407
  Receipt Date: 20130214
  Transmission Date: 20140127
  Serious: Yes (Hospitalization, Other)
  Sender: FDA-Public Use
  Company Number: US-ASTRAZENECA-2011SE17664

PATIENT
  Age: 65 Year
  Sex: Female
  Weight: 79.4 kg

DRUGS (20)
  1. SEROQUEL [Suspect]
     Indication: BIPOLAR DISORDER
     Route: 048
     Dates: start: 2003
  2. SEROQUEL [Suspect]
     Indication: BIPOLAR DISORDER
     Route: 048
     Dates: start: 2009
  3. SEROQUEL [Suspect]
     Indication: BIPOLAR DISORDER
     Route: 048
     Dates: start: 2010
  4. VENTOLIN [Concomitant]
     Indication: CHRONIC OBSTRUCTIVE PULMONARY DISEASE
     Dosage: 2 PUFFS DAILY AS REQUIRED
     Route: 055
  5. ADVAIR [Concomitant]
     Indication: CHRONIC OBSTRUCTIVE PULMONARY DISEASE
     Dosage: TWO TIMES DAILY
     Route: 055
  6. NEBULIZED ALBUTEROL [Concomitant]
     Indication: CHRONIC OBSTRUCTIVE PULMONARY DISEASE
     Dosage: AS REQUIRED
     Route: 045
  7. LAMICTAL [Concomitant]
     Indication: BIPOLAR DISORDER
  8. HCTZ [Concomitant]
  9. SIMVASTATIN [Concomitant]
  10. CLONAZEPAM [Concomitant]
     Indication: ANXIETY
  11. CLONAZEPAM [Concomitant]
     Indication: BIPOLAR DISORDER
  12. CLONAZEPAM [Concomitant]
     Indication: ANXIETY
     Route: 048
  13. CLONAZEPAM [Concomitant]
     Indication: BIPOLAR DISORDER
     Route: 048
  14. MELATONIN [Concomitant]
     Indication: SLEEP DISORDER
  15. REMRON [Concomitant]
     Indication: SLEEP DISORDER
  16. PRILOSEC [Concomitant]
     Indication: GASTROINTESTINAL DISORDER
     Route: 048
  17. LISINOPRIL HCTZ [Concomitant]
     Indication: HYPERTENSION
     Dosage: 20/25 MGDAILY
     Route: 048
  18. LOVASTATIN [Concomitant]
     Indication: BLOOD CHOLESTEROL INCREASED
     Route: 048
  19. ADVAIR DISC [Concomitant]
     Indication: EMPHYSEMA
     Dosage: 500/50 DAILY
     Route: 055
  20. VENTOLIN FHA [Concomitant]
     Indication: EMPHYSEMA
     Dosage: 18 MCG/ACT AS REQUIRED
     Route: 055

REACTIONS (7)
  - Cholelithiasis [Recovering/Resolving]
  - Pneumonia [Recovering/Resolving]
  - Sepsis [Recovered/Resolved]
  - Spinal disorder [Unknown]
  - Spinal column stenosis [Unknown]
  - Arthritis [Unknown]
  - Dyspnoea [Unknown]
